FAERS Safety Report 14401136 (Version 1)
Quarter: 2018Q1

REPORT INFORMATION
  Report Type: Spontaneous
  Country: US (occurrence: US)
  Receive Date: 20180117
  Receipt Date: 20180117
  Transmission Date: 20180509
  Serious: No
  Sender: FDA-Public Use
  Company Number: US-PFIZER INC-2018017886

PATIENT
  Age: 8 Year
  Sex: Female

DRUGS (3)
  1. EUCRISA [Suspect]
     Active Substance: CRISABOROLE
     Indication: ECZEMA
     Dosage: UNK
     Dates: start: 201711, end: 20171231
  2. EUCRISA [Suspect]
     Active Substance: CRISABOROLE
     Dosage: UNK [MIXING THE EUCRISA AND CLOTRIMAZOLE]
  3. CLOTRIMAZOLE. [Suspect]
     Active Substance: CLOTRIMAZOLE
     Indication: ECZEMA
     Dosage: UNK UNK, 1X/DAY [MIXING THE EUCRISA AND CLOTRIMAZOLE]

REACTIONS (1)
  - Drug ineffective [Unknown]

NARRATIVE: CASE EVENT DATE: 201711
